FAERS Safety Report 5811712-7 (Version None)
Quarter: 2008Q3

REPORT INFORMATION
  Report Type: 
  Country: None (occurrence: None)
  Receive Date: 20080716
  Receipt Date: 20080715
  Transmission Date: 20090109
  Serious: Yes (Hospitalization)
  Sender: FDA-Public Use
  Company Number: A0737715A

PATIENT
  Age: 66 Year
  Sex: Female

DRUGS (13)
  1. COREG [Suspect]
     Indication: HYPERTENSION
     Dosage: 25MG TWICE PER DAY
     Route: 048
  2. COREG CR [Suspect]
     Indication: HYPERTENSION
     Dosage: 80MG PER DAY
     Route: 048
     Dates: start: 20070101
  3. CARVEDILOL [Suspect]
     Indication: HYPERTENSION
     Dosage: 25MG TWICE PER DAY
     Route: 048
     Dates: start: 20080101
  4. BENICAR HCT [Concomitant]
  5. TEKTURNA [Concomitant]
  6. CLONIDINE [Concomitant]
  7. MINOXIDIL [Concomitant]
  8. XANAX [Concomitant]
  9. ZETIA [Concomitant]
  10. TRICOR [Concomitant]
  11. POTASSIUM CHLORIDE [Concomitant]
  12. VITAMIN B COMPLEX CAP [Concomitant]
  13. BIOTIN [Concomitant]

REACTIONS (8)
  - ANGER [None]
  - ANXIETY [None]
  - ARTHRALGIA [None]
  - BLOOD PRESSURE FLUCTUATION [None]
  - BREAST CANCER [None]
  - GAIT DISTURBANCE [None]
  - JOINT SWELLING [None]
  - PAIN [None]
